FAERS Safety Report 23338435 (Version 1)
Quarter: 2023Q4

REPORT INFORMATION
  Report Type: Spontaneous
  Country: US (occurrence: US)
  Receive Date: 20231226
  Receipt Date: 20231226
  Transmission Date: 20240109
  Serious: Yes (Hospitalization, Other)
  Sender: FDA-Public Use
  Company Number: US-GLAXOSMITHKLINE-US2023GSK179416

PATIENT

DRUGS (3)
  1. BUPROPION [Suspect]
     Active Substance: BUPROPION
     Indication: Depression
     Dosage: LARGE QUANTITIES
  2. ALPRAZOLAM [Suspect]
     Active Substance: ALPRAZOLAM
     Indication: Depression
     Dosage: LARGE QUANTITIES
  3. LISDEXAMFETAMINE [Suspect]
     Active Substance: LISDEXAMFETAMINE
     Indication: Depression
     Dosage: LARGE QUANTITIES

REACTIONS (7)
  - Overdose [Unknown]
  - Cardiogenic shock [Recovered/Resolved]
  - Status epilepticus [Recovering/Resolving]
  - Unresponsive to stimuli [Unknown]
  - Ventricular tachycardia [Recovered/Resolved]
  - Hypotension [Unknown]
  - Toxicity to various agents [Unknown]
